FAERS Safety Report 15752447 (Version 7)
Quarter: 2020Q3

REPORT INFORMATION
  Report Type: Spontaneous
  Country: US (occurrence: US)
  Receive Date: 20181221
  Receipt Date: 20200806
  Transmission Date: 20201102
  Serious: Yes (Hospitalization, Other)
  Sender: FDA-Public Use
  Company Number: US-VIFOR (INTERNATIONAL) INC.-VIT-2018-12435

PATIENT
  Age: 66 Year
  Sex: Male

DRUGS (8)
  1. VELTASSA [Suspect]
     Active Substance: PATIROMER
     Route: 048
     Dates: start: 20180823, end: 2018
  2. VELTASSA [Suspect]
     Active Substance: PATIROMER
     Indication: HYPERKALAEMIA
     Route: 048
     Dates: start: 20180607
  3. ALLOPURINOL. [Concomitant]
     Active Substance: ALLOPURINOL
  4. VELTASSA [Suspect]
     Active Substance: PATIROMER
     Route: 048
     Dates: end: 2020
  5. METOPROLOL TARTRATE. [Concomitant]
     Active Substance: METOPROLOL TARTRATE
  6. ASPIRIN. [Concomitant]
     Active Substance: ASPIRIN
  7. NOVOLIN NOS [Concomitant]
     Active Substance: INSULIN HUMAN
  8. SODIUM BICARBONATE. [Concomitant]
     Active Substance: SODIUM BICARBONATE

REACTIONS (11)
  - Pulmonary oedema [Unknown]
  - Gastrointestinal disorder [Unknown]
  - Hospitalisation [Unknown]
  - Product dose omission issue [Unknown]
  - Renal disorder [Unknown]
  - Blood potassium increased [Unknown]
  - Fluid retention [Unknown]
  - Thrombosis [Unknown]
  - Arteriovenous fistula operation [Unknown]
  - Decreased appetite [Unknown]
  - Dialysis [Unknown]

NARRATIVE: CASE EVENT DATE: 2018
